FAERS Safety Report 7007928-7 (Version None)
Quarter: 2010Q3

REPORT INFORMATION
  Report Type: 
  Country: None (occurrence: None)
  Receive Date: 20100922
  Receipt Date: 20100913
  Transmission Date: 20110219
  Serious: Yes (Other)
  Sender: FDA-Public Use
  Company Number: US-PFIZER INC-2010115682

PATIENT
  Sex: Male

DRUGS (2)
  1. CHANTIX [Suspect]
     Dosage: 2 X DAILY
     Route: 048
  2. CHANTIX [Suspect]
     Dosage: 1X DAILY

REACTIONS (2)
  - LOSS OF CONSCIOUSNESS [None]
  - MEMORY IMPAIRMENT [None]
